FAERS Safety Report 6131926-9 (Version None)
Quarter: 2009Q1

REPORT INFORMATION
  Report Type: 
  Country: None (occurrence: None)
  Receive Date: 20090325
  Receipt Date: 20090322
  Transmission Date: 20090719
  Serious: Yes (Other)
  Sender: FDA-Public Use
  Company Number: US-PFIZER INC-2009158283

PATIENT
  Sex: Male
  Weight: 117.93 kg

DRUGS (7)
  1. NORVASC [Suspect]
     Indication: CARDIAC DISORDER
  2. AMLODIPINE BESYLATE [Suspect]
     Dosage: 5 MG, 2X/DAY
  3. LOVASTATIN [Concomitant]
     Dosage: UNK
  4. PLAVIX [Concomitant]
     Dosage: UNK
  5. ACETYLSALICYLIC ACID [Concomitant]
     Dosage: UNK
  6. METOPROLOL [Concomitant]
     Dosage: UNK
  7. DIOVANE [Concomitant]
     Dosage: UNK

REACTIONS (5)
  - ARRHYTHMIA [None]
  - CONSTIPATION [None]
  - MYOCARDIAL INFARCTION [None]
  - PROSTATE CANCER [None]
  - URINARY RETENTION [None]
